FAERS Safety Report 24287185 (Version 1)
Quarter: 2024Q3

REPORT INFORMATION
  Report Type: Spontaneous
  Country: US (occurrence: None)
  Receive Date: 20240904
  Receipt Date: 20240904
  Transmission Date: 20241016
  Serious: Yes (Hospitalization)
  Sender: Public
  Company Number: None

PATIENT
  Age: 73 Year
  Sex: Female
  Weight: 139 kg

DRUGS (1)
  1. LEXISCAN [Suspect]
     Active Substance: REGADENOSON
     Indication: Coronary artery disease
     Dosage: 0.4 MG ONCE INTRAVENOUS BOLUS
     Route: 040
     Dates: start: 20240903, end: 20240903

REACTIONS (12)
  - Heart rate irregular [None]
  - Malaise [None]
  - Nausea [None]
  - Chills [None]
  - Pallor [None]
  - Hyperhidrosis [None]
  - Atrial fibrillation [None]
  - Chest discomfort [None]
  - Cyanosis [None]
  - Myocardial infarction [None]
  - Tremor [None]
  - Cardiac procedure complication [None]

NARRATIVE: CASE EVENT DATE: 20240903
